FAERS Safety Report 6160507-6 (Version None)
Quarter: 2009Q2

REPORT INFORMATION
  Report Type: 
  Country: None (occurrence: None)
  Receive Date: 20090416
  Receipt Date: 20090406
  Transmission Date: 20091009
  Serious: Yes (Hospitalization, Disabling, Other)
  Sender: FDA-Public Use
  Company Number: 2009AP001367

PATIENT
  Age: 65 Year
  Sex: Male

DRUGS (8)
  1. CLONAZEPAM [Suspect]
     Dosage: 1 MG; BID; PO, 2 TAB; HS; PO
     Route: 048
  2. LITHIUM CARBONATE [Suspect]
     Dosage: 300 MG; BID; PO
     Route: 048
  3. DOXEPIN HCL [Suspect]
     Dosage: 25 MG; TID;
  4. NAPROXEN [Suspect]
     Dosage: 220 MG; QD;
  5. RIVASTIGMINE TARTRATE [Suspect]
     Indication: MEMORY IMPAIRMENT
     Dosage: 1.5 MG; BID; PO
     Route: 048
  6. ATORVASTATIN [Concomitant]
  7. METOPROLOL TARTRATE [Concomitant]
  8. ACETYLSALICYLIC ACID [Concomitant]

REACTIONS (11)
  - BIPOLAR DISORDER [None]
  - COGNITIVE DISORDER [None]
  - CONFUSIONAL STATE [None]
  - DEMENTIA [None]
  - DEPRESSED MOOD [None]
  - DISORIENTATION [None]
  - FALL [None]
  - FATIGUE [None]
  - MEMORY IMPAIRMENT [None]
  - MOTOR DYSFUNCTION [None]
  - WHEELCHAIR USER [None]
